FAERS Safety Report 4537708-3 (Version None)
Quarter: 2004Q4

REPORT INFORMATION
  Report Type: 
  Country: None (occurrence: None)
  Receive Date: 20041223
  Receipt Date: 20041206
  Transmission Date: 20050328
  Serious: Yes (Hospitalization)
  Sender: FDA-Public Use
  Company Number: 601574

PATIENT
  Age: 11 Year
  Sex: Female
  Weight: 34.2 kg

DRUGS (12)
  1. GAMMAGARD S/D [Suspect]
     Indication: HYPOGAMMAGLOBULINAEMIA
     Dosage: 14 GM; QM; INTRAVENOUS
     Route: 042
     Dates: start: 20040929, end: 20040929
  2. AZITHROMYCIN [Concomitant]
  3. CALCIUM CARBONATE [Concomitant]
  4. CEFUROXIME [Concomitant]
  5. DICLOFENAC [Concomitant]
  6. FOLIC ACID [Concomitant]
  7. LANSOPRAZOLE [Concomitant]
  8. ASACOL [Concomitant]
  9. SUDAFED S.A. [Concomitant]
  10. RHINOCORT [Concomitant]
  11. FEROV [Concomitant]
  12. LORATADINE [Concomitant]

REACTIONS (7)
  - BRONCHOSPASM [None]
  - CHEST PAIN [None]
  - DYSPNOEA [None]
  - HYPERHIDROSIS [None]
  - TACHYCARDIA [None]
  - TACHYPNOEA [None]
  - TREMOR [None]
